FAERS Safety Report 7589507-6 (Version None)
Quarter: 2011Q3

REPORT INFORMATION
  Report Type: 
  Country: None (occurrence: None)
  Receive Date: 20110705
  Receipt Date: 20110627
  Transmission Date: 20111222
  Serious: Yes (Death, Hospitalization)
  Sender: FDA-Public Use
  Company Number: FR-CELGENEUS-056-C5013-10062104

PATIENT
  Sex: Female
  Weight: 58 kg

DRUGS (5)
  1. LENALIDOMIDE [Suspect]
     Indication: MULTIPLE MYELOMA
     Dosage: 25 MILLIGRAM
     Route: 048
     Dates: start: 20100518, end: 20100615
  2. DEXAMETHASONE [Suspect]
     Indication: MULTIPLE MYELOMA
     Dosage: 40 MILLIGRAM
     Route: 065
     Dates: start: 20100518, end: 20100615
  3. ASPIRIN [Concomitant]
     Indication: THROMBOSIS PROPHYLAXIS
     Dosage: 75 MILLIGRAM
     Route: 048
     Dates: start: 20060101, end: 20100619
  4. DURAGESIC-100 [Concomitant]
     Indication: PAIN
     Dosage: 600 MICROGRAM
     Route: 062
     Dates: start: 20100504, end: 20100909
  5. LOVENOX [Concomitant]
     Indication: PROPHYLAXIS
     Dosage: .4 MILLILITER

REACTIONS (2)
  - GASTROINTESTINAL NEOPLASM [None]
  - GASTROINTESTINAL STENOSIS [None]
